FAERS Safety Report 4520049-8 (Version None)
Quarter: 2004Q4

REPORT INFORMATION
  Report Type: 
  Country: None (occurrence: None)
  Receive Date: 20041202
  Receipt Date: 20041202
  Transmission Date: 20050328
  Serious: Yes (Other)
  Sender: FDA-Public Use
  Company Number: None

PATIENT
  Age: 51 Year
  Sex: Male
  Weight: 70.2 kg

DRUGS (10)
  1. MITOXANTRONE [Suspect]
     Indication: PROSTATE CANCER
     Dosage: 14 MG / M2 D1 IV
     Route: 042
     Dates: start: 20040615, end: 20040706
  2. PREDNISONE [Suspect]
     Indication: PROSTATE CANCER
     Dosage: 5 MG BID PO
     Route: 048
     Dates: start: 20040615, end: 20040701
  3. ZOLADEX [Concomitant]
  4. OXYCODONE HCL [Concomitant]
  5. DETROL LA [Concomitant]
  6. ZOLOFT [Concomitant]
  7. PROCRIT [Concomitant]
  8. COMPAZINE [Concomitant]
  9. MS CONTIN [Concomitant]
  10. ROXANOL [Concomitant]

REACTIONS (1)
  - HAEMOGLOBIN DECREASED [None]
